FAERS Safety Report 5699099-4 (Version None)
Quarter: 2008Q2

REPORT INFORMATION
  Report Type: 
  Country: None (occurrence: None)
  Receive Date: 20080401
  Receipt Date: 20070806
  Transmission Date: 20081010
  Serious: Yes (Other)
  Sender: FDA-Public Use
  Company Number: HQWYE415607AUG07

PATIENT
  Sex: Male
  Weight: 77.18 kg

DRUGS (3)
  1. INDERAL LA [Suspect]
  2. PROVIGIL [Suspect]
     Indication: NARCOLEPSY
     Dosage: 100 MG 2X PER 1 DAY, ORAL
     Route: 048
     Dates: start: 20040101, end: 20040101
  3. PROVIGIL [Suspect]
     Indication: STATUS MIGRAINOSUS
     Dosage: 100 MG 2X PER 1 DAY, ORAL
     Route: 048
     Dates: start: 20040101, end: 20040101

REACTIONS (1)
  - BRADYCARDIA [None]
